FAERS Safety Report 7394249-6 (Version None)
Quarter: 2011Q1

REPORT INFORMATION
  Report Type: 
  Country: None (occurrence: None)
  Receive Date: 20110324
  Receipt Date: 20110314
  Transmission Date: 20110831
  Serious: Yes (Other)
  Sender: FDA-Public Use
  Company Number: 2011SP011782

PATIENT
  Age: 60 Year
  Sex: Female

DRUGS (3)
  1. CLAMOXYL [Concomitant]
  2. CLARITHROMYCIN [Concomitant]
  3. DIPROFOS (BETAMETHASONE SODIUM PHOSPHATE/ DIPROPIONATE /00582101/) [Suspect]
     Indication: RESPIRATORY TRACT INFECTION
     Dosage: ONCE
     Dates: start: 20110311, end: 20110311

REACTIONS (5)
  - FLUSHING [None]
  - HYPERTENSION [None]
  - SWELLING FACE [None]
  - INSOMNIA [None]
  - TACHYCARDIA [None]
